FAERS Safety Report 12302654 (Version 1)
Quarter: 2016Q2

REPORT INFORMATION
  Report Type: Spontaneous
  Country: US (occurrence: US)
  Receive Date: 20160425
  Receipt Date: 20160425
  Transmission Date: 20160815
  Serious: No
  Sender: FDA-Public Use
  Company Number: US-SA-2015SA209223

PATIENT
  Age: 55 Year
  Sex: Female

DRUGS (1)
  1. LOVENOX [Suspect]
     Active Substance: ENOXAPARIN SODIUM
     Indication: KNEE ARTHROPLASTY
     Route: 065
     Dates: start: 20151125, end: 20151205

REACTIONS (2)
  - Feeling cold [Unknown]
  - Paraesthesia [Unknown]
